FAERS Safety Report 26110966 (Version 1)
Quarter: 2025Q4

REPORT INFORMATION
  Report Type: Spontaneous
  Country: JP (occurrence: JP)
  Receive Date: 20251202
  Receipt Date: 20251202
  Transmission Date: 20260118
  Serious: Yes (Hospitalization, Other)
  Sender: GLAND PHARMA LTD
  Company Number: JP-GLANDPHARMA-JP-2025GLNLIT02084

PATIENT
  Age: 93 Year
  Sex: Male

DRUGS (1)
  1. HALOPERIDOL DECANOATE [Suspect]
     Active Substance: HALOPERIDOL DECANOATE
     Indication: Delirium
     Dosage: ONE-TIME
     Route: 042

REACTIONS (2)
  - Immune thrombocytopenia [Recovered/Resolved]
  - Product use in unapproved indication [Unknown]
